FAERS Safety Report 18985586 (Version 3)
Quarter: 2021Q4

REPORT INFORMATION
  Report Type: Spontaneous
  Country: US (occurrence: US)
  Receive Date: 20210309
  Receipt Date: 20211109
  Transmission Date: 20220303
  Serious: Yes (Hospitalization, Other)
  Sender: FDA-Public Use
  Company Number: US-PFIZER INC-2021240264

PATIENT
  Age: 48 Year
  Sex: Female

DRUGS (14)
  1. SILDENAFIL CITRATE [Suspect]
     Active Substance: SILDENAFIL CITRATE
     Indication: Pulmonary arterial hypertension
     Dosage: 20 MG, 3X/DAY
     Route: 048
  2. SILDENAFIL CITRATE [Suspect]
     Active Substance: SILDENAFIL CITRATE
     Indication: Cardiac failure
  3. SILDENAFIL CITRATE [Suspect]
     Active Substance: SILDENAFIL CITRATE
     Indication: HIV infection
  4. SILDENAFIL CITRATE [Suspect]
     Active Substance: SILDENAFIL CITRATE
     Indication: Hypertension
  5. SILDENAFIL CITRATE [Suspect]
     Active Substance: SILDENAFIL CITRATE
     Indication: Pulmonary hypertension
  6. ORENITRAM [Suspect]
     Active Substance: TREPROSTINIL
     Indication: Pulmonary arterial hypertension
     Dosage: UNK
     Route: 048
     Dates: start: 20210103
  7. ORENITRAM [Suspect]
     Active Substance: TREPROSTINIL
     Indication: Cardiac failure
     Dosage: 0.125 MG, 3X/DAY
     Route: 048
     Dates: end: 202102
  8. ORENITRAM [Suspect]
     Active Substance: TREPROSTINIL
     Indication: HIV infection
     Dosage: 0.125 MG, 3X/DAY
     Route: 048
     Dates: start: 202102
  9. ORENITRAM [Suspect]
     Active Substance: TREPROSTINIL
     Indication: Hypertension
  10. ORENITRAM [Suspect]
     Active Substance: TREPROSTINIL
     Indication: Pulmonary hypertension
  11. BIKTARVY [Concomitant]
     Active Substance: BICTEGRAVIR SODIUM\EMTRICITABINE\TENOFOVIR ALAFENAMIDE FUMARATE
     Dosage: UNK
  12. DIGOXIN [Concomitant]
     Active Substance: DIGOXIN
     Dosage: UNK
  13. SPIRONOLACTONE [Concomitant]
     Active Substance: SPIRONOLACTONE
     Dosage: UNK
     Dates: end: 20210204
  14. TORSEMIDE [Concomitant]
     Active Substance: TORSEMIDE
     Dosage: UNK

REACTIONS (7)
  - Loss of consciousness [Recovered/Resolved]
  - Seizure [Recovered/Resolved]
  - Dyspnoea [Recovering/Resolving]
  - Pericardial effusion [Recovering/Resolving]
  - N-terminal prohormone brain natriuretic peptide increased [Unknown]
  - Cough [Recovering/Resolving]
  - Pulmonary congestion [Unknown]

NARRATIVE: CASE EVENT DATE: 20210204
